FAERS Safety Report 7822932-4 (Version None)
Quarter: 2011Q4

REPORT INFORMATION
  Report Type: 
  Country: None (occurrence: None)
  Receive Date: 20111018
  Receipt Date: 20110808
  Transmission Date: 20120403
  Serious: No
  Sender: FDA-Public Use
  Company Number: US-ASTRAZENECA-2007UW26052

PATIENT
  Age: 75 Year
  Sex: Female
  Weight: 28.6 kg

DRUGS (13)
  1. SYMBICORT [Suspect]
     Indication: CHRONIC OBSTRUCTIVE PULMONARY DISEASE
     Dosage: 80/4.5 MCG ONE FUFF BID
     Route: 055
     Dates: start: 20070701
  2. CLONAZEPAM [Concomitant]
     Dosage: TWICE A DAY
  3. IMDUR [Concomitant]
  4. SYMBICORT [Suspect]
     Indication: ASTHMA
     Dosage: 80/4.5 MCG ONE FUFF BID
     Route: 055
     Dates: start: 20070701
  5. SYMBICORT [Suspect]
     Dosage: 80/4.5 MCG TWO FUFFS BID
     Route: 055
     Dates: start: 20090101
  6. BETABLOCKER [Suspect]
     Route: 065
  7. TRAZODONE HCL [Concomitant]
     Dosage: 150 MG
  8. SPIRIVA [Concomitant]
  9. ACCUPRIL [Concomitant]
  10. SYMBICORT [Suspect]
     Dosage: 80/4.5 MCG TWO FUFFS BID
     Route: 055
     Dates: start: 20090101
  11. ALBUTEROL [Concomitant]
     Dosage: 1-2 PUFFS PRN
     Route: 055
  12. SERTRALINE HYDROCHLORIDE [Concomitant]
  13. OCUPRESS [Concomitant]

REACTIONS (4)
  - DRUG EFFECT DECREASED [None]
  - CIRCUMSTANCE OR INFORMATION CAPABLE OF LEADING TO MEDICATION ERROR [None]
  - DYSPNOEA [None]
  - NAUSEA [None]
